FAERS Safety Report 9644103 (Version 1)
Quarter: 2013Q4

REPORT INFORMATION
  Report Type: Report from Study
  Country: JP (occurrence: JP)
  Receive Date: 20131024
  Receipt Date: 20131024
  Transmission Date: 20140711
  Serious: Yes (Hospitalization)
  Sender: FDA-Public Use
  Company Number: JP-NAPPMUNDI-GBR-2013-0016147

PATIENT
  Age: 86 Year
  Sex: 0
  Weight: 43 kg

DRUGS (4)
  1. BTDS 5 MG [Suspect]
     Indication: ANALGESIC THERAPY
     Dosage: 5 MCG, Q1H
     Route: 062
     Dates: start: 20120316
  2. PARIET [Concomitant]
     Indication: GASTRIC ULCER
     Dosage: 10 MG, DAILY
     Route: 048
     Dates: start: 20111220
  3. ONEALFA [Concomitant]
     Indication: OSTEOPOROSIS
     Dosage: 0.5 MG, DAILY
     Route: 048
     Dates: start: 20090717
  4. KASHILON [Concomitant]
     Indication: BACK PAIN
     Dosage: 3 AMPULE, WEEKLY
     Route: 042
     Dates: start: 20090717

REACTIONS (1)
  - Gastric ulcer haemorrhage [Recovered/Resolved]
